FAERS Safety Report 21928538 (Version 1)
Quarter: 2023Q1

REPORT INFORMATION
  Report Type: Spontaneous
  Country: US (occurrence: US)
  Receive Date: 20230130
  Receipt Date: 20230130
  Transmission Date: 20230418
  Serious: No
  Sender: FDA-Public Use
  Company Number: US-drreddys-SPO/USA/23/0159743

PATIENT
  Age: 79 Year
  Sex: Female

DRUGS (9)
  1. LENALIDOMIDE [Suspect]
     Active Substance: LENALIDOMIDE
     Indication: Plasma cell myeloma
     Dosage: ON DAYS 1-21 OUT OF 28 DAY CYCLE
     Route: 048
  2. CALCIUM PLUS CAP 600-500M [Concomitant]
     Indication: Product used for unknown indication
     Dosage: 600-500M
  3. MAGNESIUM TAB 400MG [Concomitant]
     Indication: Product used for unknown indication
  4. MIRALAX POW 17GM/SCOOP [Concomitant]
     Indication: Product used for unknown indication
     Dosage: 17GM/SCOOP
  5. OMEGA 3-6-9 CAP [Concomitant]
     Indication: Product used for unknown indication
     Dosage: 3-6-9
  6. PRESERVISION CAP [Concomitant]
     Indication: Product used for unknown indication
  7. SENNA TAB 8.6MG [Concomitant]
     Indication: Product used for unknown indication
  8. ASPIRIN 81 CHE 81MG [Concomitant]
     Indication: Product used for unknown indication
     Dosage: CHE
  9. DULOXETINE H CPE 60MG [Concomitant]
     Indication: Product used for unknown indication
     Dosage: H CPE

REACTIONS (2)
  - Chromaturia [Not Recovered/Not Resolved]
  - Nasopharyngitis [Not Recovered/Not Resolved]
